FAERS Safety Report 4946729-8 (Version None)
Quarter: 2006Q1

REPORT INFORMATION
  Report Type: 
  Country: None (occurrence: None)
  Receive Date: 20060317
  Receipt Date: 20051019
  Transmission Date: 20060701
  Serious: Yes (Hospitalization)
  Sender: FDA-Public Use
  Company Number: US-MERCK-0510USA08384

PATIENT
  Age: 57 Year
  Sex: Female
  Weight: 82 kg

DRUGS (2)
  1. VIOXX [Suspect]
     Indication: ARTHRITIS
     Route: 048
     Dates: start: 19990101, end: 20040901
  2. TYLENOL (CAPLET) [Concomitant]
     Route: 065

REACTIONS (6)
  - ADENOIDAL DISORDER [None]
  - ADENOIDECTOMY [None]
  - CEREBROVASCULAR ACCIDENT [None]
  - TONSILLAR DISORDER [None]
  - TONSILLECTOMY [None]
  - TRANSIENT ISCHAEMIC ATTACK [None]
